FAERS Safety Report 8917602 (Version 2)
Quarter: 2013Q3

REPORT INFORMATION
  Report Type: Spontaneous
  Country: US (occurrence: US)
  Receive Date: 20121119
  Receipt Date: 20130722
  Transmission Date: 20140515
  Serious: Yes (Disabling)
  Sender: FDA-Public Use
  Company Number: US-009507513-1211USA006949

PATIENT
  Age: 62 Year
  Sex: Female

DRUGS (6)
  1. AZASITE [Suspect]
     Indication: BLEPHARITIS
     Dosage: 2 GTT, QPM
     Route: 047
     Dates: start: 20121023
  2. AZASITE [Suspect]
     Indication: KERATITIS
  3. PRED FORTE [Concomitant]
  4. ZIOPTAN [Concomitant]
  5. TIMOLOL [Concomitant]
  6. SYNTHROID [Concomitant]

REACTIONS (5)
  - Eye irritation [Recovered/Resolved]
  - Corneal disorder [Recovering/Resolving]
  - Glaucoma [Unknown]
  - Wrong technique in drug usage process [Unknown]
  - Inappropriate schedule of drug administration [Unknown]
